FAERS Safety Report 16089723 (Version 1)
Quarter: 2019Q1

REPORT INFORMATION
  Report Type: Spontaneous
  Country: AT (occurrence: AT)
  Receive Date: 20190319
  Receipt Date: 20190319
  Transmission Date: 20190418
  Serious: Yes (Hospitalization)
  Sender: FDA-Public Use
  Company Number: AT-TEVA-2019-AT-1024722

PATIENT
  Age: 17 Year
  Sex: Female
  Weight: 80 kg

DRUGS (5)
  1. DONEPEZIL 5 MG FILMTABLETTEN [Suspect]
     Active Substance: DONEPEZIL
     Route: 048
     Dates: start: 20170301, end: 20170301
  2. SORTIS 10 MG FILMTABLETTEN [Suspect]
     Active Substance: ATORVASTATIN CALCIUM
     Route: 048
     Dates: start: 20170301, end: 20170301
  3. JOSALID (JOSAMYCIN) [Suspect]
     Active Substance: JOSAMYCIN
     Route: 048
     Dates: start: 20170301, end: 20170301
  4. THROMBO ASS 100 MG FILMTABLETTEN [Suspect]
     Active Substance: ASPIRIN
     Route: 048
     Dates: start: 20170301, end: 20170301
  5. AMLODIPIN 10 MG TABLETTEN [Suspect]
     Active Substance: AMLODIPINE BESYLATE
     Route: 048
     Dates: start: 20170301, end: 20170301

REACTIONS (7)
  - Pulmonary oedema [Recovered/Resolved]
  - Dyspnoea [Recovered/Resolved]
  - Hypotension [Recovered/Resolved]
  - Intentional overdose [Recovered/Resolved]
  - Somnolence [Recovered/Resolved]
  - Chest pain [Recovered/Resolved]
  - Confusional state [Recovered/Resolved]

NARRATIVE: CASE EVENT DATE: 20170302
